FAERS Safety Report 13314539 (Version 2)
Quarter: 2017Q2

REPORT INFORMATION
  Report Type: Spontaneous
  Country: US (occurrence: US)
  Receive Date: 20170309
  Receipt Date: 20170405
  Transmission Date: 20170830
  Serious: No
  Sender: FDA-Public Use
  Company Number: US-ACTELION-A-US2017-150919

PATIENT
  Age: 71 Year
  Sex: Female

DRUGS (17)
  1. PROZAC [Concomitant]
     Active Substance: FLUOXETINE HYDROCHLORIDE
  2. SPIRONOLACTONE. [Concomitant]
     Active Substance: SPIRONOLACTONE
  3. HYDROCODONE [Concomitant]
     Active Substance: HYDROCODONE
  4. WARFARIN [Concomitant]
     Active Substance: WARFARIN
  5. FENTANYL. [Concomitant]
     Active Substance: FENTANYL
  6. LISINOPRIL. [Concomitant]
     Active Substance: LISINOPRIL
  7. UPTRAVI [Suspect]
     Active Substance: SELEXIPAG
     Dosage: 1000 MCG, BID
     Route: 048
  8. TRAZODONE [Concomitant]
     Active Substance: TRAZODONE HYDROCHLORIDE
  9. LYRICA [Concomitant]
     Active Substance: PREGABALIN
  10. UPTRAVI [Suspect]
     Active Substance: SELEXIPAG
     Indication: PRODUCT USED FOR UNKNOWN INDICATION
     Dosage: 1600 MCG, BID
     Route: 048
  11. UPTRAVI [Suspect]
     Active Substance: SELEXIPAG
     Dosage: 1200 MCG, BID
     Route: 048
  12. AMBRISENTAN [Suspect]
     Active Substance: AMBRISENTAN
     Indication: PRODUCT USED FOR UNKNOWN INDICATION
     Dosage: 10 MG, QD
     Route: 065
     Dates: start: 20130220
  13. ADCIRCA [Concomitant]
     Active Substance: TADALAFIL
  14. POTASSIUM [Concomitant]
     Active Substance: POTASSIUM
  15. LASIX [Concomitant]
     Active Substance: FUROSEMIDE
  16. DIGOXIN. [Concomitant]
     Active Substance: DIGOXIN
  17. CYMBALTA [Concomitant]
     Active Substance: DULOXETINE HYDROCHLORIDE

REACTIONS (4)
  - Insomnia [Unknown]
  - Heart rate increased [Unknown]
  - Pruritus generalised [Unknown]
  - Restlessness [Unknown]
